FAERS Safety Report 15953520 (Version 2)
Quarter: 2019Q1

REPORT INFORMATION
  Report Type: Spontaneous
  Country: US (occurrence: US)
  Receive Date: 20190212
  Receipt Date: 20190213
  Transmission Date: 20190417
  Serious: Yes (Hospitalization, Other)
  Sender: FDA-Public Use
  Company Number: US-PFIZER INC-2019053431

PATIENT
  Age: 75 Year
  Sex: Female

DRUGS (3)
  1. PREMARIN [Suspect]
     Active Substance: ESTROGENS, CONJUGATED
     Dosage: UNK
  2. XANAX [Concomitant]
     Active Substance: ALPRAZOLAM
     Indication: NERVOUSNESS
     Dosage: UNK
  3. PREMARIN [Suspect]
     Active Substance: ESTROGENS, CONJUGATED
     Dosage: UNK
     Route: 067
     Dates: start: 20190131

REACTIONS (9)
  - Gait disturbance [Unknown]
  - Anal incontinence [Unknown]
  - Diarrhoea [Unknown]
  - Dizziness [Unknown]
  - Burning sensation [Unknown]
  - Renal disorder [Unknown]
  - Ulcer [Unknown]
  - Weight increased [Unknown]
  - Haematochezia [Unknown]
